FAERS Safety Report 9771114 (Version 1)
Quarter: 2013Q4

REPORT INFORMATION
  Report Type: Spontaneous
  Country: ES (occurrence: ES)
  Receive Date: 20131218
  Receipt Date: 20131218
  Transmission Date: 20140711
  Serious: Yes (Life-Threatening, Hospitalization)
  Sender: FDA-Public Use
  Company Number: PHHY2013ES145198

PATIENT
  Age: 83 Year
  Sex: Male

DRUGS (8)
  1. SINTROM [Suspect]
     Indication: DEEP VEIN THROMBOSIS
     Dosage: UNK UKN, UNK
     Route: 048
     Dates: start: 20130426, end: 20130521
  2. SIMVASTATIN [Interacting]
     Indication: HYPERLIPIDAEMIA
     Dosage: 20 MG, EVERY 24 HOURS
     Route: 048
     Dates: start: 201011, end: 20130521
  3. PARACETAMOL [Concomitant]
     Indication: CHOLELITHIASIS
     Dosage: 2 G, DAILY
     Route: 048
     Dates: start: 200712, end: 20130521
  4. TIMOLOL [Concomitant]
     Indication: GLAUCOMA
     Dosage: 5 MG, DAILY
     Route: 048
     Dates: start: 200809, end: 20130521
  5. REPAGLINIDE [Concomitant]
     Indication: DIABETES MELLITUS
     Dosage: 1 MG, DAILY
     Route: 048
     Dates: start: 201107, end: 20130521
  6. SEGURIL [Concomitant]
     Dosage: 40 MG, DAILY
     Route: 048
     Dates: start: 201005, end: 20130521
  7. FINASTERIDE [Concomitant]
     Dosage: UNK UKN, UNK
  8. CALCIUM [Concomitant]
     Dosage: UNK UKN, UNK

REACTIONS (4)
  - Upper gastrointestinal haemorrhage [Recovered/Resolved]
  - Melaena [Unknown]
  - Fatigue [Unknown]
  - Drug interaction [Unknown]
